FAERS Safety Report 25003209 (Version 4)
Quarter: 2025Q2

REPORT INFORMATION
  Report Type: Report from Study
  Country: CN (occurrence: CN)
  Receive Date: 20250224
  Receipt Date: 20250403
  Transmission Date: 20250716
  Serious: Yes (Other)
  Sender: ROCHE
  Company Number: CN-ROCHE-10000210917

PATIENT
  Age: 48 Year
  Sex: Female
  Weight: 40 kg

DRUGS (1)
  1. KADCYLA [Suspect]
     Active Substance: ADO-TRASTUZUMAB EMTANSINE
     Indication: Breast cancer
     Dosage: ON 23 MAR 2024 THE MOST RECENT DOSE (144 MG) OF MEDICINAL PRODUCT WAS ADMINISTERED PRIOR TO AE ONSET
     Route: 042
     Dates: start: 20231214

REACTIONS (3)
  - White blood cell count decreased [Recovered/Resolved]
  - Anaemia [Recovered/Resolved]
  - Cardiac failure [Not Recovered/Not Resolved]

NARRATIVE: CASE EVENT DATE: 20240415
